FAERS Safety Report 5496680-2 (Version None)
Quarter: 2007Q4

REPORT INFORMATION
  Report Type: 
  Country: None (occurrence: None)
  Receive Date: 20071025
  Receipt Date: 20070702
  Transmission Date: 20080405
  Serious: No
  Sender: FDA-Public Use
  Company Number: A0661300A

PATIENT
  Age: 79 Year
  Sex: Female

DRUGS (7)
  1. ADVAIR DISKUS 100/50 [Suspect]
     Indication: EMPHYSEMA
     Dosage: 1PUFF TWICE PER DAY
     Route: 055
     Dates: start: 20040101
  2. PAROXETINE [Concomitant]
  3. VITAMIN [Concomitant]
     Indication: EYE DISORDER
  4. ASPIRIN [Concomitant]
  5. CORRECTOL [Concomitant]
  6. ALBUTEROL [Concomitant]
  7. DUONEB [Concomitant]

REACTIONS (3)
  - EYE DISORDER [None]
  - MUSCLE TIGHTNESS [None]
  - WEIGHT INCREASED [None]
